FAERS Safety Report 19208181 (Version 1)
Quarter: 2021Q2

REPORT INFORMATION
  Report Type: Spontaneous
  Country: US (occurrence: US)
  Receive Date: 20210503
  Receipt Date: 20210503
  Transmission Date: 20210717
  Serious: Yes (Hospitalization)
  Sender: FDA-Public Use
  Company Number: US-FRESENIUS MEDICAL CARE RENAL THERAPIES GROUP-FMC-2104-000573

PATIENT
  Age: 81 Year
  Sex: Male
  Weight: 68 kg

DRUGS (1)
  1. DELFLEX WITH DEXTROSE 2.5% LOW MAGNESIUM LOW CALCIUM [Suspect]
     Active Substance: CALCIUM CHLORIDE\DEXTROSE\MAGNESIUM CHLORIDE\SODIUM CHLORIDE\SODIUM LACTATE
     Indication: END STAGE RENAL DISEASE
     Dosage: AT 2700 ML FOR 5 CYCLES WITH NO LAST FILL AND NO DAYTIME EXCHANGE, FOR APPROXIMATELY TWO YEARS
     Route: 033

REACTIONS (2)
  - Diarrhoea [Unknown]
  - Peritonitis bacterial [Unknown]

NARRATIVE: CASE EVENT DATE: 20210329
